FAERS Safety Report 7674949-0 (Version None)
Quarter: 2011Q3

REPORT INFORMATION
  Report Type: 
  Country: None (occurrence: None)
  Receive Date: 20110810
  Receipt Date: 20110802
  Transmission Date: 20111222
  Serious: Yes (Death, Other)
  Sender: FDA-Public Use
  Company Number: JP-AMGEN-JPNCT2011040401

PATIENT
  Age: 76 Year
  Sex: Male
  Weight: 69 kg

DRUGS (25)
  1. SELBEX [Concomitant]
     Dosage: UNK
     Route: 048
  2. MUCODYNE [Concomitant]
     Dosage: UNK
     Route: 048
  3. PANITUMUMAB [Suspect]
     Indication: COLORECTAL CANCER
     Dosage: 6 MG/KG, Q2WK
     Route: 041
     Dates: start: 20100803
  4. IRINOTECAN HCL [Suspect]
     Dosage: 190 MG, Q2WK
     Route: 041
     Dates: start: 20101018
  5. LOXOPROFEN SODIUM [Concomitant]
     Dosage: UNK
     Route: 048
  6. LANSOPRAZOLE [Concomitant]
     Dosage: UNK
     Route: 048
  7. FAMOTIDINE [Concomitant]
     Dosage: UNK
     Route: 048
  8. CORTICOSTEROIDS [Concomitant]
     Indication: PROPHYLAXIS
     Dosage: UNK
  9. FLUOROURACIL [Concomitant]
     Route: 041
     Dates: start: 20100803, end: 20100815
  10. FAMOTIDINE [Concomitant]
     Dosage: UNK
     Route: 048
  11. PRIMPERAN TAB [Concomitant]
     Dosage: UNK
     Route: 048
  12. FLUOROURACIL [Concomitant]
     Indication: COLORECTAL CANCER
     Route: 040
     Dates: start: 20100803, end: 20100815
  13. ETODOLAC [Concomitant]
     Dosage: UNK
     Route: 048
  14. IRINOTECAN HCL [Suspect]
     Indication: COLORECTAL CANCER
     Route: 041
     Dates: start: 20100803, end: 20100815
  15. DEXAMETHASONE SODIUM PHOSPHATE [Concomitant]
     Dosage: 6.6 MG, UNK
     Route: 042
     Dates: start: 20100803
  16. MAGNESIUM OXIDE [Concomitant]
     Dosage: UNK
     Route: 048
  17. BROTIZOLAM [Concomitant]
     Dosage: UNK
     Route: 048
  18. LASIX [Concomitant]
     Dosage: UNK
     Route: 048
  19. REBAMIPIDE [Concomitant]
     Dosage: UNK
     Route: 048
  20. MEIACT [Concomitant]
     Dosage: UNK
     Route: 048
  21. LEVOFLOXACIN [Concomitant]
     Dosage: UNK
     Route: 048
  22. DASEN [Concomitant]
     Dosage: 5 MG, UNK
     Route: 048
  23. LEUCOVORIN CALCIUM [Concomitant]
     Indication: COLORECTAL CANCER
     Route: 041
     Dates: start: 20100803, end: 20100815
  24. LAC B [Concomitant]
     Dosage: UNK
     Route: 048
  25. CEFDINIR [Concomitant]
     Dosage: UNK
     Route: 048

REACTIONS (10)
  - NAIL AVULSION [None]
  - STOMATITIS [None]
  - DYSGEUSIA [None]
  - DECREASED APPETITE [None]
  - COLORECTAL CANCER [None]
  - FATIGUE [None]
  - DRY SKIN [None]
  - PYREXIA [None]
  - RASH [None]
  - NEUROPATHY PERIPHERAL [None]
